FAERS Safety Report 18200628 (Version 2)
Quarter: 2020Q3

REPORT INFORMATION
  Report Type: Spontaneous
  Country: AT (occurrence: AT)
  Receive Date: 20200827
  Receipt Date: 20200831
  Transmission Date: 20201103
  Serious: Yes (Other)
  Sender: FDA-Public Use
  Company Number: AT-ROCHE-2665417

PATIENT
  Sex: Female
  Weight: 80 kg

DRUGS (6)
  1. THYREX [Concomitant]
     Active Substance: LEVOTHYROXINE SODIUM
  2. TRITACE [Concomitant]
     Active Substance: RAMIPRIL
     Indication: HYPERTENSION
  3. ANASTROZOLE. [Concomitant]
     Active Substance: ANASTROZOLE
  4. VITAMINS WITH MINERALS [Concomitant]
     Active Substance: MINERALS\VITAMINS
  5. HERCEPTIN [Suspect]
     Active Substance: TRASTUZUMAB
     Indication: BREAST CANCER
     Route: 065
  6. TEMESTA [Concomitant]

REACTIONS (1)
  - Chronic lymphocytic leukaemia [Unknown]
